FAERS Safety Report 9802177 (Version 2)
Quarter: 2014Q1

REPORT INFORMATION
  Report Type: Report from Study
  Country: DK (occurrence: DK)
  Receive Date: 20140107
  Receipt Date: 20140107
  Transmission Date: 20141002
  Serious: Yes (Hospitalization)
  Sender: FDA-Public Use
  Company Number: DK-BRISTOL-MYERS SQUIBB COMPANY-15834872

PATIENT
  Age: 61 Year
  Sex: Female

DRUGS (4)
  1. IPILIMUMAB [Suspect]
     Indication: MALIGNANT MELANOMA
     Dosage: 1200MG:23MAY11.(1)INTERRUP?0MG:14JUN11(2)RESTART?1198 MG RESTART 06JUL11-06JUL11: C2?1200MG
     Route: 042
     Dates: start: 20110523
  2. AMLODIPINE [Concomitant]
  3. SPARKAL [Concomitant]
  4. PARACETAMOL [Concomitant]

REACTIONS (3)
  - Erysipelas [Recovered/Resolved with Sequelae]
  - Pyrexia [Recovered/Resolved]
  - Tooth infection [Recovered/Resolved]
